FAERS Safety Report 7141736-1 (Version None)
Quarter: 2010Q4

REPORT INFORMATION
  Report Type: 
  Country: None (occurrence: None)
  Receive Date: 20101207
  Receipt Date: 20101126
  Transmission Date: 20110411
  Serious: Yes (Other)
  Sender: FDA-Public Use
  Company Number: NO-BAXTER-2010BH028845

PATIENT
  Age: 65 Year
  Sex: Male

DRUGS (1)
  1. GAMMAGARD LIQUID [Suspect]
     Indication: HYPOGAMMAGLOBULINAEMIA
     Route: 042
     Dates: start: 20101110, end: 20101110

REACTIONS (3)
  - CHILLS [None]
  - PYREXIA [None]
  - RENAL PAIN [None]
